FAERS Safety Report 9492452 (Version 2)
Quarter: 2014Q1

REPORT INFORMATION
  Report Type: Spontaneous
  Country: US (occurrence: US)
  Receive Date: 20130830
  Receipt Date: 20140213
  Transmission Date: 20141002
  Serious: Yes (Hospitalization)
  Sender: FDA-Public Use
  Company Number: US-B.I. PHARMACEUTICALS,INC./RIDGEFIELD-2013-BI-26687BP

PATIENT
  Age: 83 Year
  Sex: Female
  Weight: 68.04 kg

DRUGS (13)
  1. PRADAXA [Suspect]
     Indication: ATRIAL FIBRILLATION
     Dosage: 300 MG
     Route: 048
     Dates: start: 20110719, end: 20111017
  2. ASPIRIN [Concomitant]
     Dosage: 81 MG
     Route: 048
  3. LORAZEPAM [Concomitant]
     Route: 048
     Dates: start: 2008, end: 2013
  4. VITAMIN E [Concomitant]
     Dosage: 800 U
     Route: 048
  5. BONIVA [Concomitant]
     Route: 048
  6. LASIX [Concomitant]
     Dosage: 80 MG
     Route: 048
     Dates: start: 2006, end: 2013
  7. NITROSTAT [Concomitant]
     Route: 060
  8. NORVASC [Concomitant]
     Dosage: 2.5 MG
     Route: 048
     Dates: start: 2008, end: 2013
  9. COREG [Concomitant]
     Dosage: 6.25 MG
     Route: 048
     Dates: start: 2010, end: 2013
  10. LEVOTHYROXINE [Concomitant]
     Dosage: 137 MCG
     Route: 048
     Dates: start: 2006, end: 2013
  11. HYZAAR [Concomitant]
     Route: 048
     Dates: start: 2008, end: 2013
  12. MULTIVITAMIN [Concomitant]
     Route: 048
  13. ZOCOR [Concomitant]
     Dosage: 20 MG
     Route: 048
     Dates: start: 2006, end: 2013

REACTIONS (4)
  - Gastrointestinal haemorrhage [Unknown]
  - Bleeding varicose vein [Recovered/Resolved]
  - Haemorrhagic anaemia [Unknown]
  - Renal failure acute [Unknown]
